FAERS Safety Report 8135345-5 (Version None)
Quarter: 2012Q1

REPORT INFORMATION
  Report Type: 
  Country: None (occurrence: None)
  Receive Date: 20120214
  Receipt Date: 20120207
  Transmission Date: 20120608
  Serious: Yes (Hospitalization)
  Sender: FDA-Public Use
  Company Number: US-RB-034587-12

PATIENT
  Age: 88 Year
  Sex: Female

DRUGS (5)
  1. MULTI-VITAMIN [Concomitant]
     Indication: PRODUCT USED FOR UNKNOWN INDICATION
  2. CITRACAL [Concomitant]
     Indication: PRODUCT USED FOR UNKNOWN INDICATION
  3. MUCINEX FAST MAX ADULT COLD FLU THROAT [Suspect]
     Indication: RESPIRATORY TRACT CONGESTION
     Route: 048
     Dates: start: 20120120
  4. MUCINEX FAST MAX ADULT COLD FLU THROAT [Suspect]
     Route: 048
     Dates: start: 20120118
  5. WELCO [Concomitant]
     Indication: BLOOD CHOLESTEROL

REACTIONS (5)
  - FEELING JITTERY [None]
  - ASTHMA [None]
  - FEELING HOT [None]
  - HEART RATE DECREASED [None]
  - FLUSHING [None]
